FAERS Safety Report 13700221 (Version 1)
Quarter: 2017Q2

REPORT INFORMATION
  Report Type: Spontaneous
  Country: SE (occurrence: SE)
  Receive Date: 20170629
  Receipt Date: 20170629
  Transmission Date: 20170830
  Serious: Yes (Other)
  Sender: FDA-Public Use
  Company Number: PHHY2017SE090380

PATIENT
  Age: 65 Year
  Sex: Female

DRUGS (1)
  1. DESLORATADINE SANDOZ [Suspect]
     Active Substance: DESLORATADINE
     Indication: HYPERSENSITIVITY
     Dosage: 5 MG, QD, 5 MG 1 TABLETT PER DAG
     Route: 048
     Dates: start: 20170509, end: 20170531

REACTIONS (5)
  - Hypotension [Recovered/Resolved]
  - Headache [Recovered/Resolved]
  - Nausea [Recovered/Resolved]
  - Dizziness [Recovered/Resolved]
  - Palpitations [Recovered/Resolved]

NARRATIVE: CASE EVENT DATE: 20170525
